FAERS Safety Report 25655061 (Version 1)
Quarter: 2025Q3

REPORT INFORMATION
  Report Type: Spontaneous
  Country: JP (occurrence: JP)
  Receive Date: 20250807
  Receipt Date: 20250807
  Transmission Date: 20251021
  Serious: Yes (Hospitalization)
  Sender: PFIZER
  Company Number: JP-PFIZER INC-PV202500094060

PATIENT
  Age: 52 Year
  Sex: Male
  Weight: 48 kg

DRUGS (12)
  1. METRONIDAZOLE [Suspect]
     Active Substance: METRONIDAZOLE
     Indication: Cholangitis
     Dosage: 500 MG, 3X/DAY
     Route: 041
     Dates: start: 20250604, end: 20250624
  2. CEFEPIME [Suspect]
     Active Substance: CEFEPIME HYDROCHLORIDE
     Indication: Cholangitis
     Dosage: 2 G, 2X/DAY
     Route: 041
     Dates: start: 20250605, end: 20250624
  3. VANCOMYCIN HYDROCHLORIDE MEIJI [Concomitant]
  4. URSODIOL [Concomitant]
     Active Substance: URSODIOL
  5. POLAPREZINC OD SAWAI [Concomitant]
  6. FOLIC ACID [Concomitant]
     Active Substance: FOLIC ACID
  7. LANSOPRAZOLE [Concomitant]
     Active Substance: LANSOPRAZOLE
  8. EDOXABAN TOSYLATE [Concomitant]
     Active Substance: EDOXABAN TOSYLATE
  9. LIVACT [ISOLEUCINE;LEUCINE;VALINE] [Concomitant]
  10. AMINOLEBAN EN [ARGININE HYDROCHLORIDE;BIOTIN;BISBENTIAMINE;CALCIUM GLY [Concomitant]
  11. TARTIRELIN OD [Concomitant]
  12. BEZAFIBRATE [Concomitant]
     Active Substance: BEZAFIBRATE

REACTIONS (9)
  - Encephalopathy [Recovering/Resolving]
  - Toxic encephalopathy [Recovering/Resolving]
  - Wernicke^s encephalopathy [Recovering/Resolving]
  - Nausea [Unknown]
  - Speech disorder [Unknown]
  - Incontinence [Unknown]
  - Muscular weakness [Unknown]
  - Dyslalia [Unknown]
  - Vitamin B1 decreased [Unknown]

NARRATIVE: CASE EVENT DATE: 20250622
